FAERS Safety Report 4718976-1 (Version None)
Quarter: 2005Q3

REPORT INFORMATION
  Report Type: 
  Country: None (occurrence: None)
  Receive Date: 20050719
  Receipt Date: 20050707
  Transmission Date: 20060218
  Serious: Yes (Other)
  Sender: FDA-Public Use
  Company Number: MEDI-0003524

PATIENT
  Age: 44 Year
  Sex: Male
  Weight: 91 kg

DRUGS (8)
  1. ETHYOL [Suspect]
     Indication: DRY MOUTH
     Dosage: 420 MG TOTAL DOSE OVER 5 CYCLES,
     Dates: start: 20050516, end: 20050616
  2. ETHYOL [Suspect]
     Indication: RADIOTHERAPY
     Dosage: 420 MG TOTAL DOSE OVER 5 CYCLES,
     Dates: start: 20050516, end: 20050616
  3. RADIATION THERAPY [Concomitant]
  4. TRANXENE [Concomitant]
  5. EFFEXOR [Concomitant]
  6. PREDNISOLONE [Concomitant]
  7. PREDNISOLONE [Concomitant]
  8. EFFARALGAN CODEINE [Concomitant]

REACTIONS (6)
  - DERMATITIS ALLERGIC [None]
  - DRUG HYPERSENSITIVITY [None]
  - HYPERHIDROSIS [None]
  - HYPOTENSION [None]
  - NODULE [None]
  - PHARYNGOLARYNGEAL PAIN [None]
